FAERS Safety Report 7206652-5 (Version None)
Quarter: 2010Q4

REPORT INFORMATION
  Report Type: 
  Country: None (occurrence: None)
  Receive Date: 20101217
  Receipt Date: 20101208
  Transmission Date: 20110411
  Serious: Yes (Death, Hospitalization)
  Sender: FDA-Public Use
  Company Number: PIR#1012011

PATIENT
  Age: 51 Year
  Sex: Male

DRUGS (1)
  1. METRONIDAZOLE INJECTION 0.5% [Suspect]

REACTIONS (12)
  - BALANCE DISORDER [None]
  - BRAIN ABSCESS [None]
  - CEREBELLAR SYNDROME [None]
  - DYSARTHRIA [None]
  - DYSPHONIA [None]
  - ENCEPHALOPATHY [None]
  - FUSOBACTERIUM INFECTION [None]
  - GAIT DISTURBANCE [None]
  - GENERAL PHYSICAL CONDITION ABNORMAL [None]
  - HEMIPARESIS [None]
  - LOSS OF CONSCIOUSNESS [None]
  - PYREXIA [None]
